FAERS Safety Report 19866825 (Version 1)
Quarter: 2021Q3

REPORT INFORMATION
  Report Type: Spontaneous
  Country: US (occurrence: US)
  Receive Date: 20210921
  Receipt Date: 20210921
  Transmission Date: 20211014
  Serious: No
  Sender: FDA-Public Use
  Company Number: US-BRAINTREE LABORATORIES, INC.-2021BTE00225

PATIENT
  Age: 65 Year
  Sex: Female

DRUGS (3)
  1. NP THYROID [Concomitant]
     Active Substance: LEVOTHYROXINE\LIOTHYRONINE
  2. SUPREP BOWEL PREP [Suspect]
     Active Substance: MAGNESIUM SULFATE\POTASSIUM SULFATE\SODIUM SULFATE
     Indication: COLONOSCOPY
     Dosage: 2 X 6 OZ. BOTTLE, 1X
     Route: 048
     Dates: start: 20210321, end: 20210322
  3. UNSPECIFIED DIETARY SUPPLEMENTS [Concomitant]

REACTIONS (5)
  - Nausea [Not Recovered/Not Resolved]
  - Rash pruritic [Recovered/Resolved]
  - Skin burning sensation [Recovered/Resolved]
  - Skin odour abnormal [Not Recovered/Not Resolved]
  - Vomiting [Recovered/Resolved]

NARRATIVE: CASE EVENT DATE: 202103
